FAERS Safety Report 25953744 (Version 1)
Quarter: 2025Q4

REPORT INFORMATION
  Report Type: Report from Study
  Country: GB (occurrence: GB)
  Receive Date: 20251023
  Receipt Date: 20251023
  Transmission Date: 20260117
  Serious: Yes (Hospitalization)
  Sender: ABBVIE
  Company Number: GB-ABBVIE-6511526

PATIENT
  Sex: Male

DRUGS (2)
  1. CARBIDOPA\LEVODOPA [Suspect]
     Active Substance: CARBIDOPA\LEVODOPA
     Indication: Parkinson^s disease
     Dosage: DUODOPA 20MG/5MG?MD 8.5 CR 2.6 ED 1.3?CR 2.6MLS/HR
     Route: 050
  2. CARBIDOPA\LEVODOPA [Suspect]
     Active Substance: CARBIDOPA\LEVODOPA
     Dosage: DUODOPA 20MG/5MG?MD 8.5 CR 2.5 ED 1.3?CR REDUCED TO 2.5MLS/HR
     Route: 050

REACTIONS (2)
  - Heart rate increased [Unknown]
  - Stoma site hypergranulation [Unknown]
